FAERS Safety Report 16805575 (Version 1)
Quarter: 2019Q3

REPORT INFORMATION
  Report Type: Spontaneous
  Country: US (occurrence: US)
  Receive Date: 20190724
  Receipt Date: 20190724
  Transmission Date: 20191005
  Serious: No
  Sender: FDA-Public Use
  Company Number: None

PATIENT
  Age: 57 Year
  Sex: Female

DRUGS (1)
  1. COSENTYX [Suspect]
     Active Substance: SECUKINUMAB
     Indication: PSORIASIS
     Dates: start: 201904

REACTIONS (6)
  - Diarrhoea [None]
  - Fatigue [None]
  - Arthritis [None]
  - Swelling face [None]
  - Ill-defined disorder [None]
  - Lip swelling [None]

NARRATIVE: CASE EVENT DATE: 20190724
